FAERS Safety Report 7121784-8 (Version None)
Quarter: 2010Q4

REPORT INFORMATION
  Report Type: 
  Country: None (occurrence: None)
  Receive Date: 20101124
  Receipt Date: 20101031
  Transmission Date: 20110411
  Serious: Yes (Hospitalization, Other)
  Sender: FDA-Public Use
  Company Number: US-AMGEN-USASP2010003001

PATIENT

DRUGS (4)
  1. PROCRIT [Suspect]
     Indication: ANAEMIA
     Dosage: 4000 UNK, QWK
     Route: 058
     Dates: start: 20080101
  2. CELEXA [Concomitant]
     Indication: DEPRESSION
     Dosage: 40 MG, QD
     Route: 048
  3. ATENOLOL [Concomitant]
     Indication: SINUS TACHYCARDIA
     Dosage: 50 MG, QD
     Route: 048
  4. MIDODRINE HYDROCHLORIDE [Concomitant]
     Indication: SINUS TACHYCARDIA
     Dosage: 5 MG, BID
     Route: 048

REACTIONS (6)
  - BLOOD LACTIC ACID DECREASED [None]
  - BLOOD POTASSIUM DECREASED [None]
  - CARDIAC ABLATION [None]
  - HAEMATOCRIT DECREASED [None]
  - HAEMOGLOBIN DECREASED [None]
  - KIDNEY INFECTION [None]
